FAERS Safety Report 8170001-9 (Version None)
Quarter: 2012Q1

REPORT INFORMATION
  Report Type: 
  Country: None (occurrence: None)
  Receive Date: 20120228
  Receipt Date: 20120222
  Transmission Date: 20120608
  Serious: Yes (Life-Threatening, Other)
  Sender: FDA-Public Use
  Company Number: JP-ELI_LILLY_AND_COMPANY-JP201102004564

PATIENT
  Age: 52 Year
  Sex: Male
  Weight: 90 kg

DRUGS (6)
  1. HUMALOG MIX 50/50 [Suspect]
     Indication: TYPE 2 DIABETES MELLITUS
     Dosage: 14 U, 2/D
     Route: 058
     Dates: end: 20110215
  2. HUMALOG MIX 50/50 [Suspect]
     Dosage: 420 U, UNK
     Route: 058
     Dates: start: 20110216, end: 20110216
  3. NITRAZEPAM [Concomitant]
     Dosage: 40 MG, DAILY (1/D)
  4. LITHIUM CARBONATE [Concomitant]
     Dosage: 800 MG, DAILY (1/D)
  5. SETIPTILINE MALEATE [Concomitant]
     Dosage: 4 MG, DAILY (1/D)
  6. AMANTADINE HCL [Concomitant]
     Dosage: 200 MG, UNK

REACTIONS (6)
  - EXCORIATION [None]
  - SUICIDE ATTEMPT [None]
  - DEPRESSED LEVEL OF CONSCIOUSNESS [None]
  - BLOOD POTASSIUM DECREASED [None]
  - OVERDOSE [None]
  - ROAD TRAFFIC ACCIDENT [None]
